FAERS Safety Report 16130291 (Version 1)
Quarter: 2019Q1

REPORT INFORMATION
  Report Type: Spontaneous
  Country: US (occurrence: US)
  Receive Date: 20190328
  Receipt Date: 20190328
  Transmission Date: 20190418
  Serious: No
  Sender: FDA-Public Use
  Company Number: US-009507513-1903USA007988

PATIENT

DRUGS (1)
  1. VYTORIN [Suspect]
     Active Substance: EZETIMIBE\SIMVASTATIN
     Dosage: 1 TABLET DAILY
     Route: 048

REACTIONS (3)
  - Wrong technique in product usage process [Unknown]
  - Product physical issue [Unknown]
  - No adverse event [Unknown]

NARRATIVE: CASE EVENT DATE: 201903
